FAERS Safety Report 13820215 (Version 1)
Quarter: 2017Q3

REPORT INFORMATION
  Report Type: Spontaneous
  Country: US (occurrence: US)
  Receive Date: 20170801
  Receipt Date: 20170801
  Transmission Date: 20171127
  Serious: No
  Sender: FDA-Public Use
  Company Number: None

PATIENT
  Age: 28 Year
  Sex: Female
  Weight: 54 kg

DRUGS (4)
  1. ZOLPIDEM TARTRATE. [Suspect]
     Active Substance: ZOLPIDEM TARTRATE
     Indication: INSOMNIA
     Route: 048
  2. FISH OIL [Concomitant]
     Active Substance: FISH OIL
  3. IBUPROFEN. [Concomitant]
     Active Substance: IBUPROFEN
  4. CRANBERRY. [Concomitant]
     Active Substance: CRANBERRY

REACTIONS (2)
  - Reaction to excipient [None]
  - Insomnia [None]

NARRATIVE: CASE EVENT DATE: 20170801
